FAERS Safety Report 14132071 (Version 3)
Quarter: 2017Q4

REPORT INFORMATION
  Report Type: Report from Study
  Country: US (occurrence: US)
  Receive Date: 20171026
  Receipt Date: 20171218
  Transmission Date: 20180321
  Serious: Yes (Life-Threatening, Hospitalization, Other)
  Sender: FDA-Public Use
  Company Number: US-MYLANLABS-2017M1066261

PATIENT
  Age: 66 Year
  Sex: Female
  Weight: 74 kg

DRUGS (5)
  1. XELJANZ XR [Suspect]
     Active Substance: TOFACITINIB CITRATE
     Indication: RHEUMATOID ARTHRITIS
     Dosage: 11 MG, QD
     Route: 048
     Dates: start: 2015, end: 201708
  2. PREDNISONE. [Suspect]
     Active Substance: PREDNISONE
     Indication: PRODUCT USED FOR UNKNOWN INDICATION
     Dosage: UNK
  3. DECADRON [Suspect]
     Active Substance: DEXAMETHASONE
     Indication: ANGIOEDEMA
     Dosage: UNK
  4. SOLU-MEDROL [Suspect]
     Active Substance: METHYLPREDNISOLONE SODIUM SUCCINATE
     Indication: ANGIOEDEMA
     Dosage: UNK
  5. EPINEPHRINE. [Suspect]
     Active Substance: EPINEPHRINE
     Indication: ANGIOEDEMA
     Dosage: UNK

REACTIONS (5)
  - Tympanic membrane perforation [Unknown]
  - Blood cholesterol increased [Not Recovered/Not Resolved]
  - Condition aggravated [Unknown]
  - Angioedema [Unknown]
  - Swelling [Unknown]

NARRATIVE: CASE EVENT DATE: 201708
